FAERS Safety Report 10939286 (Version 2)
Quarter: 2015Q2

REPORT INFORMATION
  Report Type: Spontaneous
  Country: US (occurrence: US)
  Receive Date: 20150322
  Receipt Date: 20150525
  Transmission Date: 20150821
  Serious: No
  Sender: FDA-Public Use
  Company Number: US-JNJFOC-20140601289

PATIENT
  Age: 43 Year
  Sex: Female

DRUGS (1)
  1. NUCYNTA [Suspect]
     Active Substance: TAPENTADOL HYDROCHLORIDE
     Indication: BACK PAIN
     Route: 065

REACTIONS (4)
  - Anxiety [Unknown]
  - Breakthrough pain [Unknown]
  - Euphoric mood [Unknown]
  - Treatment noncompliance [Unknown]
